FAERS Safety Report 4886452-1 (Version None)
Quarter: 2006Q1

REPORT INFORMATION
  Report Type: 
  Country: None (occurrence: None)
  Receive Date: 20060120
  Receipt Date: 20060109
  Transmission Date: 20060701
  Serious: Yes (Hospitalization)
  Sender: FDA-Public Use
  Company Number: US-MERCK-0601USA01241

PATIENT
  Age: 50 Year
  Sex: Female
  Weight: 79 kg

DRUGS (16)
  1. VIOXX [Suspect]
     Indication: BACK PAIN
     Route: 048
     Dates: start: 19990913, end: 20020930
  2. VIOXX [Suspect]
     Route: 048
     Dates: start: 19990913, end: 20020930
  3. VIOXX [Suspect]
     Route: 048
     Dates: start: 20040622, end: 20040930
  4. VIOXX [Suspect]
     Route: 048
     Dates: start: 20040622, end: 20040930
  5. VIOXX [Suspect]
     Indication: FIBROMYALGIA
     Route: 048
     Dates: start: 19990913, end: 20020930
  6. VIOXX [Suspect]
     Route: 048
     Dates: start: 19990913, end: 20020930
  7. VIOXX [Suspect]
     Route: 048
     Dates: start: 20040622, end: 20040930
  8. VIOXX [Suspect]
     Route: 048
     Dates: start: 20040622, end: 20040930
  9. BUSPAR [Concomitant]
     Route: 048
  10. CYCLOBENZAPRINE HYDROCHLORIDE [Concomitant]
     Route: 048
  11. PAXIL [Concomitant]
     Route: 048
  12. BELLERGAL-S TABLETS [Concomitant]
     Route: 048
  13. PRILOSEC [Concomitant]
     Route: 048
  14. AGGRENOX [Concomitant]
     Route: 048
  15. LASIX [Concomitant]
     Route: 048
  16. ASPIRIN [Concomitant]
     Route: 048

REACTIONS (10)
  - ABDOMINAL PAIN [None]
  - ADVERSE EVENT [None]
  - BLOOD TRIGLYCERIDES INCREASED [None]
  - CEREBROVASCULAR ACCIDENT [None]
  - CHEST PAIN [None]
  - CSF GLUCOSE INCREASED [None]
  - HYPOAESTHESIA [None]
  - INFECTION [None]
  - SOMNOLENCE [None]
  - VASCULAR ENCEPHALOPATHY [None]
